FAERS Safety Report 9046554 (Version 2)
Quarter: 2013Q4

REPORT INFORMATION
  Report Type: Spontaneous
  Country: GB (occurrence: GB)
  Receive Date: 20130203
  Receipt Date: 20131008
  Transmission Date: 20140711
  Serious: Yes (Disabling)
  Sender: FDA-Public Use
  Company Number: GB-TEVA-382464ISR

PATIENT
  Age: 42 Year
  Sex: Male

DRUGS (9)
  1. METRONIDAZOLE [Suspect]
     Indication: PILONIDAL CYST
     Dosage: 1200 MILLIGRAM DAILY;
     Route: 048
     Dates: start: 20130108, end: 20130109
  2. CIPROFLOXACIN [Suspect]
     Indication: PILONIDAL CYST
     Dosage: SINGLE DOSE BEGINING AT 19:30
     Route: 048
     Dates: start: 20130108, end: 20130108
  3. ERYTHROMYCIN [Concomitant]
     Indication: PILONIDAL CYST
     Dosage: 2000 MILLIGRAM DAILY; GASTRO-RESISTANT TAB
     Route: 048
     Dates: start: 20121220, end: 20121227
  4. CO-CODAMOL [Concomitant]
     Indication: PAIN
     Dosage: 8 DOSAGE FORMS DAILY; 30MG CODEINE PHOSPHATE/500MG PARACETAMOL  TABLETS
     Route: 048
     Dates: start: 20130108
  5. MORPHINE SULPHATE [Concomitant]
     Indication: PAIN
     Dosage: 10MG/1ML
     Route: 040
     Dates: start: 20130109, end: 20130109
  6. MORPHINE SULPHATE [Concomitant]
     Indication: PAIN
     Dosage: 10MG/5ML ORAL SOLUTION. 20MG STAT AT 10:20AM
     Route: 048
     Dates: start: 20130109, end: 20130109
  7. TRAMADOL [Concomitant]
     Indication: PAIN
     Route: 048
     Dates: start: 20130109, end: 20130109
  8. PARACETAMOL [Concomitant]
     Dosage: 1G STAT AT 11AM
     Route: 048
     Dates: start: 20130109, end: 20130109
  9. IBUPROFEN [Concomitant]
     Indication: PAIN
     Dosage: 400MG STAT AT 10:30AM
     Route: 048
     Dates: start: 20130109, end: 201301

REACTIONS (2)
  - Deafness bilateral [Recovered/Resolved]
  - Vertigo [Not Recovered/Not Resolved]
